FAERS Safety Report 5751032-2 (Version None)
Quarter: 2008Q2

REPORT INFORMATION
  Report Type: 
  Country: None (occurrence: None)
  Receive Date: 20080528
  Receipt Date: 20080527
  Transmission Date: 20081010
  Serious: Yes (Congenital Anomaly)
  Sender: FDA-Public Use
  Company Number: GB-ABBOTT-07P-167-0370886-00

PATIENT
  Sex: Male

DRUGS (1)
  1. VALPROIC ACID [Suspect]
     Indication: DRUG EXPOSURE DURING PREGNANCY
     Route: 064

REACTIONS (16)
  - ABNORMAL BEHAVIOUR [None]
  - ANOMALY OF EXTERNAL EAR CONGENITAL [None]
  - ASOCIAL BEHAVIOUR [None]
  - CONGENITAL FOOT MALFORMATION [None]
  - COORDINATION ABNORMAL [None]
  - DACRYOSTENOSIS CONGENITAL [None]
  - DEVELOPMENTAL DELAY [None]
  - DISTURBANCE IN ATTENTION [None]
  - DRUG EXPOSURE DURING PREGNANCY [None]
  - DYSMORPHISM [None]
  - JAUNDICE [None]
  - JOINT INSTABILITY [None]
  - LIP DISORDER [None]
  - MEMORY IMPAIRMENT [None]
  - SKULL MALFORMATION [None]
  - SPEECH DISORDER DEVELOPMENTAL [None]
